FAERS Safety Report 8979974 (Version 1)
Quarter: 2012Q4

REPORT INFORMATION
  Report Type: 
  Country: NL (occurrence: NL)
  Receive Date: 20121221
  Receipt Date: 20121221
  Transmission Date: 20130627
  Serious: Yes (Hospitalization)
  Sender: FDA-Public Use
  Company Number: PHHY2012NL115530

PATIENT
  Sex: Female

DRUGS (5)
  1. ZOMETA [Suspect]
     Indication: BREAST CANCER METASTATIC
     Dosage: 4 mg/100 ml per 42 days
  2. ZOMETA [Suspect]
     Dosage: 4 mg/100 ml per 42 days
     Dates: start: 20111111
  3. ZOMETA [Suspect]
     Dosage: 4 mg/100 ml per 42 days
     Dates: start: 20121102
  4. ZOMETA [Suspect]
     Dosage: 4 mg/100 ml per 42 days
     Dates: start: 20121214
  5. ASCAL [Concomitant]
     Dosage: 100 UKN, UNK

REACTIONS (1)
  - Transient ischaemic attack [Recovering/Resolving]
